FAERS Safety Report 23337063 (Version 1)
Quarter: 2023Q4

REPORT INFORMATION
  Report Type: Spontaneous
  Country: CH (occurrence: None)
  Receive Date: 20231226
  Receipt Date: 20231226
  Transmission Date: 20240109
  Serious: Yes (Other)
  Sender: FDA-Public Use
  Company Number: CH-ROCHE-3477853

PATIENT
  Age: 68 Year
  Sex: Female

DRUGS (6)
  1. AVASTIN [Suspect]
     Active Substance: BEVACIZUMAB
     Indication: Rectal cancer
     Dosage: MAINTENANCE UNTIL 13/AUG/2021
     Route: 065
     Dates: start: 20200204, end: 20200526
  2. AVASTIN [Suspect]
     Active Substance: BEVACIZUMAB
     Indication: Fallopian tube cancer
  3. CARBOPLATIN [Suspect]
     Active Substance: CARBOPLATIN
     Indication: Rectal cancer
     Route: 065
     Dates: start: 20200204, end: 20200526
  4. CARBOPLATIN [Suspect]
     Active Substance: CARBOPLATIN
     Indication: Fallopian tube cancer
  5. PACLITAXEL [Suspect]
     Active Substance: PACLITAXEL
     Indication: Rectal cancer
     Route: 065
     Dates: start: 20200204, end: 20200526
  6. PACLITAXEL [Suspect]
     Active Substance: PACLITAXEL
     Indication: Fallopian tube cancer

REACTIONS (1)
  - Mediastinum neoplasm [Unknown]

NARRATIVE: CASE EVENT DATE: 20210101
